FAERS Safety Report 10408660 (Version 1)
Quarter: 2014Q3

REPORT INFORMATION
  Report Type: Spontaneous
  Country: US (occurrence: None)
  Receive Date: 20140822
  Receipt Date: 20140822
  Transmission Date: 20150326
  Serious: Yes (Disabling)
  Sender: FDA-Public Use
  Company Number: None

PATIENT
  Age: 68 Year
  Sex: Female

DRUGS (5)
  1. AMRIX [Suspect]
     Active Substance: CYCLOBENZAPRINE HYDROCHLORIDE
     Indication: NEURALGIA
     Dosage: 1 PILL A DAY AT BEDTIME  ONCE DAILY  TAKEN BY MOUTH
     Route: 048
     Dates: start: 20140805, end: 20140808
  2. AMRIX [Suspect]
     Active Substance: CYCLOBENZAPRINE HYDROCHLORIDE
     Indication: POST PROCEDURAL COMPLICATION
     Dosage: 1 PILL A DAY AT BEDTIME  ONCE DAILY  TAKEN BY MOUTH
     Route: 048
     Dates: start: 20140805, end: 20140808
  3. AMRIX [Suspect]
     Active Substance: CYCLOBENZAPRINE HYDROCHLORIDE
     Indication: PRODUCT USED FOR UNKNOWN INDICATION
     Dosage: 1 PILL A DAY AT BEDTIME  ONCE DAILY  TAKEN BY MOUTH
     Route: 048
     Dates: start: 20140805, end: 20140808
  4. AMRIX [Suspect]
     Active Substance: CYCLOBENZAPRINE HYDROCHLORIDE
     Indication: SURGERY
     Dosage: 1 PILL A DAY AT BEDTIME  ONCE DAILY  TAKEN BY MOUTH
     Route: 048
     Dates: start: 20140805, end: 20140808
  5. AMRIX [Suspect]
     Active Substance: CYCLOBENZAPRINE HYDROCHLORIDE
     Indication: MUSCLE SPASMS
     Dosage: 1 PILL A DAY AT BEDTIME  ONCE DAILY  TAKEN BY MOUTH
     Route: 048
     Dates: start: 20140805, end: 20140808

REACTIONS (2)
  - No therapeutic response [None]
  - Migraine [None]

NARRATIVE: CASE EVENT DATE: 20140809
